FAERS Safety Report 6404998-1 (Version None)
Quarter: 2009Q4

REPORT INFORMATION
  Report Type: 
  Country: None (occurrence: None)
  Receive Date: 20091019
  Receipt Date: 20091014
  Transmission Date: 20100525
  Serious: Yes (Other)
  Sender: FDA-Public Use
  Company Number: BR-PFIZER INC-2009204646

PATIENT
  Age: 58 Year

DRUGS (3)
  1. XALATAN [Suspect]
     Indication: GLAUCOMA
     Dosage: 3 UG, 1X/DAY
     Route: 047
     Dates: start: 20090408
  2. RIVOTRIL [Concomitant]
     Indication: INSOMNIA
     Dosage: 2 MG, UNK
     Dates: start: 20040101
  3. SYNTHROID [Concomitant]
     Indication: HYPOTHYROIDISM
     Dosage: 75 MG, UNK

REACTIONS (6)
  - EYE PAIN [None]
  - HAEMORRHOIDS [None]
  - MIGRAINE WITH AURA [None]
  - MULTIPLE ALLERGIES [None]
  - NAUSEA [None]
  - SINUSITIS [None]
